FAERS Safety Report 4649611-9 (Version None)
Quarter: 2005Q2

REPORT INFORMATION
  Report Type: 
  Country: None (occurrence: None)
  Receive Date: 20050427
  Receipt Date: 20050411
  Transmission Date: 20051028
  Serious: Yes (Other)
  Sender: FDA-Public Use
  Company Number: USA050495348

PATIENT
  Age: 84 Year
  Sex: Male

DRUGS (1)
  1. FORTEO [Suspect]
     Indication: OSTEOPOROSIS
     Dates: start: 20040101

REACTIONS (2)
  - BLADDER NEOPLASM [None]
  - PHARMACEUTICAL PRODUCT COMPLAINT [None]
